FAERS Safety Report 7967987-1 (Version None)
Quarter: 2011Q4

REPORT INFORMATION
  Report Type: 
  Country: None (occurrence: None)
  Receive Date: 20111209
  Receipt Date: 20111202
  Transmission Date: 20120403
  Serious: Yes (Hospitalization)
  Sender: FDA-Public Use
  Company Number: DE-SANOFI-AVENTIS-2011SA069495

PATIENT
  Age: 51 Year
  Sex: Female

DRUGS (3)
  1. CISPLATIN [Suspect]
     Indication: NON-SMALL CELL LUNG CANCER
     Route: 041
     Dates: start: 20111018, end: 20111018
  2. CETUXIMAB [Suspect]
     Indication: NON-SMALL CELL LUNG CANCER
     Route: 042
     Dates: start: 20111018, end: 20111018
  3. DOCETAXEL [Suspect]
     Indication: NON-SMALL CELL LUNG CANCER
     Route: 041
     Dates: start: 20111018, end: 20111018

REACTIONS (4)
  - NEUROPATHY PERIPHERAL [None]
  - VOMITING [None]
  - NAUSEA [None]
  - ELECTROLYTE IMBALANCE [None]
